FAERS Safety Report 18338601 (Version 1)
Quarter: 2020Q3

REPORT INFORMATION
  Report Type: Spontaneous
  Country: US (occurrence: US)
  Receive Date: 20200928
  Receipt Date: 20200928
  Transmission Date: 20201103
  Serious: No
  Sender: FDA-Public Use
  Company Number: None

PATIENT
  Sex: Female

DRUGS (2)
  1. REMDESIVIR. [Suspect]
     Active Substance: REMDESIVIR
     Indication: COVID-19
     Route: 042
     Dates: start: 2020
  2. REMDESIVIR. [Suspect]
     Active Substance: REMDESIVIR
     Route: 042

REACTIONS (6)
  - Maternal exposure during pregnancy [None]
  - Arrhythmia [None]
  - Alanine aminotransferase increased [None]
  - Product use in unapproved indication [None]
  - Torsade de pointes [None]
  - Aspartate aminotransferase increased [None]
